FAERS Safety Report 9679922 (Version 2)
Quarter: 2013Q4

REPORT INFORMATION
  Report Type: Report from Study
  Country: BR (occurrence: BR)
  Receive Date: 20131110
  Receipt Date: 20131110
  Transmission Date: 20140711
  Serious: Yes (Death, Hospitalization)
  Sender: FDA-Public Use
  Company Number: BR-US-EMD SERONO, INC.-7219059

PATIENT
  Age: 24 Year
  Sex: Female

DRUGS (4)
  1. REBIF [Suspect]
     Indication: MULTIPLE SCLEROSIS
     Dates: start: 20130405
  2. NEUTROFER [Concomitant]
     Indication: ANAEMIA
  3. NORIPURUM [Concomitant]
     Indication: ANAEMIA
  4. TILEXIM [Concomitant]
     Indication: PRODUCT USED FOR UNKNOWN INDICATION

REACTIONS (11)
  - Sepsis [Fatal]
  - Multi-organ failure [Fatal]
  - Cardiac arrest [Fatal]
  - Somnolence [Unknown]
  - Cough [Not Recovered/Not Resolved]
  - Nausea [Unknown]
  - Vomiting [Unknown]
  - Asthenia [Recovered/Resolved]
  - Malaise [Unknown]
  - Decreased appetite [Recovered/Resolved]
  - Anaemia [Unknown]
